FAERS Safety Report 7342447-X (Version None)
Quarter: 2011Q1

REPORT INFORMATION
  Report Type: 
  Country: None (occurrence: None)
  Receive Date: 20110310
  Receipt Date: 20110304
  Transmission Date: 20110831
  Serious: No
  Sender: FDA-Public Use
  Company Number: US-PFIZER INC-2011048376

PATIENT
  Age: 19 Year
  Sex: Male

DRUGS (2)
  1. WELLBUTRIN [Concomitant]
  2. GEODON [Suspect]
     Indication: BIPOLAR DISORDER

REACTIONS (1)
  - DRUG INEFFECTIVE [None]
